FAERS Safety Report 8319398-7 (Version None)
Quarter: 2012Q2

REPORT INFORMATION
  Report Type: 
  Country: None (occurrence: None)
  Receive Date: 20120427
  Receipt Date: 20120423
  Transmission Date: 20120825
  Serious: Yes (Death)
  Sender: FDA-Public Use
  Company Number: PHHY2012US035838

PATIENT
  Age: 17 Year
  Sex: Female

DRUGS (18)
  1. METHYLPHENIDATE [Suspect]
     Dosage: UNK UKN, UNK
  2. DEXTROMETHORPHAN POLISTIREX [Suspect]
     Dosage: UNK UKN, UNK
  3. FLUOXETINE [Suspect]
     Dosage: UNK UKN, UNK
  4. HYOSCYAMINE [Suspect]
     Dosage: UNK UKN, UNK
  5. LAXATIVES [Suspect]
     Dosage: UNK UKN, UNK
  6. CITALOPRAM HYDROBROMIDE [Suspect]
     Dosage: UNK UKN, UNK
  7. ETHANOL [Suspect]
  8. MAGNESIUM SULFATE [Suspect]
     Dosage: UNK UKN, UNK
  9. PSEUDOEPHEDRINE HCL [Suspect]
     Dosage: UNK UKN, UNK
  10. LOPERAMIDE [Suspect]
     Dosage: UNK UKN, UNK
  11. ROSUVASTATIN [Suspect]
  12. PHENOL [Suspect]
     Dosage: UNK UKN, UNK
  13. MONTELUKAST SODIUM [Suspect]
     Dosage: UNK UKN, UNK
  14. IBUPROFEN [Suspect]
     Dosage: UNK UKN, UNK
  15. HALOPERIDOL [Suspect]
     Dosage: UNK UKN, UNK
  16. ACETAMINOPHEN AND HYDROCODONE BITARTRATE [Suspect]
     Dosage: UNK UKN, UNK
  17. GUAIFENESIN [Suspect]
     Dosage: UNK UKN, UNK
  18. NAPROXEN [Suspect]

REACTIONS (1)
  - COMPLETED SUICIDE [None]
